FAERS Safety Report 14118366 (Version 4)
Quarter: 2019Q3

REPORT INFORMATION
  Report Type: Report from Study
  Country: JP (occurrence: JP)
  Receive Date: 20171024
  Receipt Date: 20190818
  Transmission Date: 20191004
  Serious: Yes (Hospitalization, Other)
  Sender: FDA-Public Use
  Company Number: JP-AMGEN-JPNCT2017160690

PATIENT
  Age: 68 Year
  Sex: Male

DRUGS (20)
  1. PREDNISOLONE. [Suspect]
     Active Substance: PREDNISOLONE
     Indication: MYELODYSPLASTIC SYNDROME
     Dosage: 10 MILLIGRAM
     Route: 048
  2. DARBEPOETIN ALFA [Suspect]
     Active Substance: DARBEPOETIN ALFA
     Dosage: 120 MICROGRAM, Q2WK
     Route: 058
     Dates: start: 20150513, end: 20150708
  3. RAPIACTA [Concomitant]
     Active Substance: PERAMIVIR
     Dosage: UNK
     Route: 065
     Dates: start: 20160225, end: 20160225
  4. ZOSYN [Concomitant]
     Active Substance: PIPERACILLIN SODIUM\TAZOBACTAM SODIUM
     Dosage: UNK
     Route: 065
     Dates: start: 20160226, end: 20160302
  5. CEFEPIME [CEFEPIME HYDROCHLORIDE] [Concomitant]
     Dosage: UNK
     Route: 065
     Dates: start: 20161014, end: 20161026
  6. CEFEPIME [CEFEPIME HYDROCHLORIDE] [Concomitant]
     Dosage: UNK
     Route: 065
     Dates: start: 20161224
  7. DAIPHEN [Concomitant]
     Active Substance: SULFAMETHOXAZOLE\TRIMETHOPRIM
     Dosage: 1 DOSAGE FORM
     Route: 048
  8. CEFEPIME [CEFEPIME HYDROCHLORIDE] [Concomitant]
     Dosage: UNK
     Route: 065
     Dates: start: 20160810, end: 20160816
  9. CEFEPIME [CEFEPIME HYDROCHLORIDE] [Concomitant]
     Dosage: UNK
     Route: 065
     Dates: start: 20161108, end: 20161112
  10. FINIBAX [Concomitant]
     Active Substance: DORIPENEM MONOHYDRATE
     Indication: PYREXIA
     Dosage: UNK
     Route: 065
     Dates: start: 20160816, end: 20160822
  11. DARBEPOETIN ALFA [Suspect]
     Active Substance: DARBEPOETIN ALFA
     Indication: MYELODYSPLASTIC SYNDROME
     Dosage: 120 MICROGRAM, Q2WK
     Route: 058
     Dates: start: 20150107, end: 20150415
  12. DARBEPOETIN ALFA [Suspect]
     Active Substance: DARBEPOETIN ALFA
     Dosage: 120 MICROGRAM, QWK
     Route: 058
     Dates: start: 20150715, end: 20151007
  13. CRAVIT [Concomitant]
     Active Substance: LEVOFLOXACIN
     Dosage: 500 MILLIGRAM
     Route: 048
  14. DARBEPOETIN ALFA [Suspect]
     Active Substance: DARBEPOETIN ALFA
     Dosage: 120 MICROGRAM, QWK
     Route: 058
     Dates: start: 20151028, end: 20151222
  15. DARBEPOETIN ALFA [Suspect]
     Active Substance: DARBEPOETIN ALFA
     Dosage: 120 MICROGRAM
     Route: 058
     Dates: start: 20160106
  16. ACICLOVIR [Concomitant]
     Active Substance: ACYCLOVIR
     Dosage: 200 MILLIGRAM
     Route: 048
  17. FLUCONAZOLE. [Concomitant]
     Active Substance: FLUCONAZOLE
     Dosage: 100 MILLIGRAM
     Route: 048
  18. LANSOPRAZOLE. [Concomitant]
     Active Substance: LANSOPRAZOLE
     Indication: DUODENAL ULCER
     Dosage: 15 MILLIGRAM
     Route: 048
  19. CEFTRIAXONE SODIUM HYDRATE [Concomitant]
     Active Substance: CEFTRIAXONE SODIUM
     Dosage: UNK
     Route: 065
     Dates: start: 20160617, end: 20160620
  20. CEFEPIME [CEFEPIME HYDROCHLORIDE] [Concomitant]
     Dosage: UNK
     Route: 065
     Dates: start: 20161122, end: 20161130

REACTIONS (11)
  - Pyrexia [Recovered/Resolved]
  - Pyrexia [Recovering/Resolving]
  - Bronchitis [Recovered/Resolved]
  - Retinal vein occlusion [Recovered/Resolved]
  - Pneumonia [Recovered/Resolved]
  - Influenza [Recovered/Resolved]
  - Bacterial sepsis [Not Recovered/Not Resolved]
  - Pathogen resistance [Not Recovered/Not Resolved]
  - Pyrexia [Recovered/Resolved]
  - Pyrexia [Recovered/Resolved]
  - Stomatitis [Not Recovered/Not Resolved]

NARRATIVE: CASE EVENT DATE: 20150107
